FAERS Safety Report 17120793 (Version 2)
Quarter: 2021Q4

REPORT INFORMATION
  Report Type: Other
  Country: US (occurrence: None)
  Receive Date: 20191206
  Receipt Date: 20211215
  Transmission Date: 20220303
  Serious: Yes (Other)
  Sender: FDA-Public Use
  Company Number: US-ROCHE-2484426

PATIENT
  Sex: Female

DRUGS (11)
  1. CELLCEPT [Suspect]
     Active Substance: MYCOPHENOLATE MOFETIL
     Indication: Lung transplant
     Route: 048
  2. CELLCEPT [Suspect]
     Active Substance: MYCOPHENOLATE MOFETIL
     Dosage: 250MG BID
     Route: 065
  3. VALGANCICLOVIR [Concomitant]
     Active Substance: VALGANCICLOVIR
  4. AZITHROMYCIN [Concomitant]
     Active Substance: AZITHROMYCIN
  5. TACROLIMUS [Concomitant]
     Active Substance: TACROLIMUS
  6. FERROUS SULFATE [Concomitant]
     Active Substance: FERROUS SULFATE
  7. PREDNISOLONE [Concomitant]
     Active Substance: PREDNISOLONE
  8. IPRATROPIUM [Concomitant]
     Active Substance: IPRATROPIUM
  9. DIGOXIN [Concomitant]
     Active Substance: DIGOXIN
  10. AMLODIPINE [Concomitant]
     Active Substance: AMLODIPINE BESYLATE
  11. VORICONAZOLE [Concomitant]
     Active Substance: VORICONAZOLE

REACTIONS (3)
  - Pericardial effusion [Unknown]
  - Cardiomegaly [Unknown]
  - Off label use [Unknown]
